FAERS Safety Report 5534557-4 (Version None)
Quarter: 2007Q4

REPORT INFORMATION
  Report Type: 
  Country: None (occurrence: None)
  Receive Date: 20071204
  Receipt Date: 20071204
  Transmission Date: 20080405
  Serious: Yes (Other)
  Sender: FDA-Public Use
  Company Number: None

PATIENT
  Age: 5 Year
  Sex: Female
  Weight: 17.2367 kg

DRUGS (2)
  1. LISINOPRIL [Suspect]
     Indication: HYPERTENSION
     Dosage: 2 MG DAILY PO
     Route: 048
     Dates: start: 20070918, end: 20071122
  2. LISINOPRIL [Suspect]
     Indication: PROTEINURIA
     Dosage: 2 MG DAILY PO
     Route: 048
     Dates: start: 20070918, end: 20071122

REACTIONS (7)
  - ABNORMAL DREAMS [None]
  - FEAR [None]
  - FORMICATION [None]
  - HALLUCINATIONS, MIXED [None]
  - PHARMACEUTICAL PRODUCT COMPLAINT [None]
  - SCREAMING [None]
  - SLEEP DISORDER [None]
